FAERS Safety Report 4367016-5 (Version None)
Quarter: 2004Q2

REPORT INFORMATION
  Report Type: 
  Country: None (occurrence: None)
  Receive Date: 20040524
  Receipt Date: 20040518
  Transmission Date: 20050107
  Serious: Yes (Hospitalization)
  Sender: FDA-Public Use
  Company Number: STA-AE-MTX-199

PATIENT
  Age: 69 Year
  Sex: Female

DRUGS (27)
  1. METHOTREXATE [Suspect]
     Indication: CREST SYNDROME
     Dosage: 15 MG 1X PER 1 WK, ORAL
     Route: 048
     Dates: start: 19950501
  2. METHOTREXATE [Suspect]
     Indication: RHEUMATOID ARTHRITIS
     Dosage: 15 MG 1X PER 1 WK, ORAL
     Route: 048
     Dates: start: 19950501
  3. METHOTREXATE [Suspect]
     Indication: SJOGREN'S SYNDROME
     Dosage: 15 MG 1X PER 1 WK, ORAL
     Route: 048
     Dates: start: 19950501
  4. ENBREL [Suspect]
     Indication: CREST SYNDROME
     Dosage: 25 MG 2X PER 1 WK, PARENTERAL
     Route: 051
     Dates: start: 20021201, end: 20031001
  5. ENBREL [Suspect]
     Indication: RHEUMATOID ARTHRITIS
     Dosage: 25 MG 2X PER 1 WK, PARENTERAL
     Route: 051
     Dates: start: 20021201, end: 20031001
  6. ENBREL [Suspect]
     Indication: SJOGREN'S SYNDROME
     Dosage: 25 MG 2X PER 1 WK, PARENTERAL
     Route: 051
     Dates: start: 20021201, end: 20031001
  7. AVALIDE [Concomitant]
  8. FOLIC ACID [Concomitant]
  9. LIPITOR [Concomitant]
  10. NEXIUM [Concomitant]
  11. PLETAL [Concomitant]
  12. AMOXICILLIN [Concomitant]
  13. NEURONTIN [Concomitant]
  14. CARAFATE [Concomitant]
  15. LIDOCAINE [Concomitant]
  16. TRAMADOL HCL [Concomitant]
  17. ASPIRIN [Concomitant]
  18. CITRACAL (CALCIUM CITRATE) [Concomitant]
  19. SLO-MAG (MAGNESIUM CHLORIDE ANHYDROUS) [Concomitant]
  20. CALCIUM WITH VITAMIN D (CALCIUM PHOSPHATE/ CALCIUM SODIUM LACTATE/ERGO [Concomitant]
  21. MACROBID [Concomitant]
  22. ROBAXIN [Concomitant]
  23. SALAGEN [Concomitant]
  24. VALTREX [Concomitant]
  25. SYNTHROID [Concomitant]
  26. MYCELEX [Concomitant]
  27. PREDNISOLONE [Suspect]
     Indication: SJOGREN'S SYNDROME
     Dosage: 1 MG 2X PER 1 DAY, ORAL
     Route: 048
     Dates: start: 20001001

REACTIONS (9)
  - AUTOIMMUNE DISORDER [None]
  - HYPONATRAEMIA [None]
  - INFECTION [None]
  - LEUKOCYTOSIS [None]
  - MARKEDLY REDUCED DIETARY INTAKE [None]
  - MEDICATION ERROR [None]
  - POLYDIPSIA [None]
  - SCIATICA [None]
  - SELF-MEDICATION [None]
